FAERS Safety Report 4647938-8 (Version None)
Quarter: 2005Q2

REPORT INFORMATION
  Report Type: 
  Country: None (occurrence: None)
  Receive Date: 20050428
  Receipt Date: 20050416
  Transmission Date: 20051028
  Serious: Yes (Death)
  Sender: FDA-Public Use
  Company Number: US-KINGPHARMUSA00001-K200500538

PATIENT

DRUGS (2)
  1. PITRESSIN [Suspect]
     Indication: SEPSIS
  2. DROTRECOGIN ALFA [Suspect]
     Indication: SEPSIS
     Route: 042

REACTIONS (1)
  - DEATH [None]
